FAERS Safety Report 8344289-5 (Version None)
Quarter: 2012Q2

REPORT INFORMATION
  Report Type: 
  Country: None (occurrence: None)
  Receive Date: 20120402
  Receipt Date: 20120126
  Transmission Date: 20120825
  Serious: Yes (Other)
  Sender: FDA-Public Use
  Company Number: 319576USA

PATIENT
  Age: 46 Year
  Sex: Female

DRUGS (9)
  1. LEVETIRACETAM [Concomitant]
  2. MIRTAZAPINE [Concomitant]
  3. ARIPIPRAZOLE [Concomitant]
  4. HYDROXYCHLOROQUINE SULFATE [Concomitant]
  5. PREGABALIN [Concomitant]
  6. VENLAFAXINE [Suspect]
     Dosage: 450 MG 9225 MG, 2 IN 1 D)
  7. METHADONE HCL [Concomitant]
  8. ERGOCALCIFEROL [Concomitant]
  9. PROTRIPTYLINE HCL [Concomitant]

REACTIONS (4)
  - SUICIDE ATTEMPT [None]
  - FEELING ABNORMAL [None]
  - IMPULSIVE BEHAVIOUR [None]
  - UPPER LIMB FRACTURE [None]
